FAERS Safety Report 5236609-5 (Version None)
Quarter: 2007Q1

REPORT INFORMATION
  Report Type: 
  Country: None (occurrence: None)
  Receive Date: 20070208
  Receipt Date: 20070124
  Transmission Date: 20070707
  Serious: Yes (Other)
  Sender: FDA-Public Use
  Company Number: 235997

PATIENT
  Age: 45 Year
  Sex: Male

DRUGS (7)
  1. XOLAIR [Suspect]
     Indication: ASTHMA
     Dosage: Q2W
  2. PREDNISONE TAB [Concomitant]
  3. FLUTICASONE (FLUTICASONE PROPIONATE) [Concomitant]
  4. SALMETEROL (SALMETEROL) [Concomitant]
  5. MONTELUKAST (MONTELUKAST SODIUM) [Concomitant]
  6. IMMUNOTHERAPY (UNK ANTIGEN) (ALLERGENIC EXTRACTS) [Concomitant]
  7. STEROIDS (STEROID NOS) [Concomitant]

REACTIONS (1)
  - ALLERGIC GRANULOMATOUS ANGIITIS [None]
